FAERS Safety Report 6667715-6 (Version None)
Quarter: 2010Q2

REPORT INFORMATION
  Report Type: 
  Country: None (occurrence: None)
  Receive Date: 20100405
  Receipt Date: 20100322
  Transmission Date: 20101027
  Serious: Yes (Other)
  Sender: FDA-Public Use
  Company Number: GB-MYLANLABS-2010S1004714

PATIENT
  Age: 47 Year
  Sex: Female

DRUGS (2)
  1. LEVOTHYROXINE SODIUM [Suspect]
     Indication: BASEDOW'S DISEASE
  2. PROPYLTHIOURACIL [Concomitant]
     Indication: BASEDOW'S DISEASE
     Dosage: INITIAL DOSE NOT STATED

REACTIONS (1)
  - PSYCHOTIC DISORDER [None]
